FAERS Safety Report 14491390 (Version 2)
Quarter: 2018Q1

REPORT INFORMATION
  Report Type: Spontaneous
  Country: FR (occurrence: FR)
  Receive Date: 20180206
  Receipt Date: 20180220
  Transmission Date: 20180509
  Serious: Yes (Congenital Anomaly)
  Sender: FDA-Public Use
  Company Number: FR-ABBVIE-18P-056-2245730-00

PATIENT
  Sex: Male

DRUGS (2)
  1. DEPAKINE CHRONO [Suspect]
     Active Substance: VALPROATE SODIUM
     Indication: MATERNAL EXPOSURE TIMING UNSPECIFIED
     Route: 064
  2. DEPAKINE CHRONO [Suspect]
     Active Substance: VALPROATE SODIUM
     Route: 063

REACTIONS (29)
  - Congenital hand malformation [Not Recovered/Not Resolved]
  - Psychomotor retardation [Not Recovered/Not Resolved]
  - Hypertonia [Not Recovered/Not Resolved]
  - Dysmorphism [Not Recovered/Not Resolved]
  - Maternal exposure during breast feeding [Unknown]
  - Nasopharyngitis [Not Recovered/Not Resolved]
  - Sleep disorder [Not Recovered/Not Resolved]
  - Conjunctivitis [Not Recovered/Not Resolved]
  - Learning disorder [Unknown]
  - Aggression [Unknown]
  - Speech disorder developmental [Unknown]
  - Enuresis [Not Recovered/Not Resolved]
  - Foetal exposure during pregnancy [Unknown]
  - Spine malformation [Not Recovered/Not Resolved]
  - Hypermetropia [Not Recovered/Not Resolved]
  - Ear infection [Not Recovered/Not Resolved]
  - Bronchitis [Not Recovered/Not Resolved]
  - Astigmatism [Not Recovered/Not Resolved]
  - Foetal anticonvulsant syndrome [Not Recovered/Not Resolved]
  - Plagiocephaly [Not Recovered/Not Resolved]
  - Dyspraxia [Not Recovered/Not Resolved]
  - Hyperkinesia [Not Recovered/Not Resolved]
  - Autism spectrum disorder [Unknown]
  - Hypotonia [Not Recovered/Not Resolved]
  - Cognitive disorder [Unknown]
  - Psychomotor skills impaired [Not Recovered/Not Resolved]
  - Anxiety [Not Recovered/Not Resolved]
  - Congenital foot malformation [Not Recovered/Not Resolved]
  - Attention deficit/hyperactivity disorder [Unknown]
